FAERS Safety Report 6374029-0 (Version None)
Quarter: 2009Q3

REPORT INFORMATION
  Report Type: 
  Country: None (occurrence: None)
  Receive Date: 20090924
  Receipt Date: 20090713
  Transmission Date: 20100115
  Serious: No
  Sender: FDA-Public Use
  Company Number: US-ASTRAZENECA-2009UW19473

PATIENT
  Sex: Female
  Weight: 76.7 kg

DRUGS (3)
  1. SEROQUEL [Suspect]
     Route: 048
  2. LEXAPRO [Concomitant]
  3. XANAX [Concomitant]

REACTIONS (3)
  - DRY MOUTH [None]
  - HYPOTENSION [None]
  - INCREASED UPPER AIRWAY SECRETION [None]
